FAERS Safety Report 22630606 (Version 1)
Quarter: 2023Q2

REPORT INFORMATION
  Report Type: Spontaneous
  Country: US (occurrence: US)
  Receive Date: 20230622
  Receipt Date: 20230622
  Transmission Date: 20230721
  Serious: No
  Sender: FDA-Public Use
  Company Number: PR-BoehringerIngelheim-2023-BI-241454

PATIENT
  Age: 78 Year
  Sex: Male

DRUGS (1)
  1. GLYXAMBI [Suspect]
     Active Substance: EMPAGLIFLOZIN\LINAGLIPTIN
     Indication: Type 2 diabetes mellitus
     Dosage: 10 MG EMPAGLIFLOZIN/5 MG LINAGLIPTIN

REACTIONS (3)
  - Headache [Unknown]
  - Hunger [Unknown]
  - Blood glucose increased [Unknown]
